FAERS Safety Report 5595639-4 (Version None)
Quarter: 2008Q1

REPORT INFORMATION
  Report Type: 
  Country: None (occurrence: None)
  Receive Date: 20080118
  Receipt Date: 20080108
  Transmission Date: 20080703
  Serious: Yes (Hospitalization)
  Sender: FDA-Public Use
  Company Number: US-AMGEN-US256955

PATIENT
  Sex: Male
  Weight: 97.2 kg

DRUGS (1)
  1. ENBREL [Suspect]
     Indication: PSORIATIC ARTHROPATHY
     Route: 058
     Dates: start: 20070721

REACTIONS (2)
  - ATYPICAL MYCOBACTERIAL INFECTION [None]
  - POSTOPERATIVE WOUND INFECTION [None]
